FAERS Safety Report 25449303 (Version 1)
Quarter: 2025Q2

REPORT INFORMATION
  Report Type: Spontaneous
  Country: US (occurrence: US)
  Receive Date: 20250618
  Receipt Date: 20250618
  Transmission Date: 20250716
  Serious: No
  Sender: ELI LILLY AND COMPANY
  Company Number: US-ELI_LILLY_AND_COMPANY-US202506013730

PATIENT
  Age: 58 Year
  Sex: Female

DRUGS (1)
  1. ZEPBOUND [Suspect]
     Active Substance: TIRZEPATIDE
     Indication: Weight control
     Route: 058

REACTIONS (7)
  - Haematochezia [Unknown]
  - Decreased appetite [Unknown]
  - Fear [Unknown]
  - Diarrhoea [Unknown]
  - Flatulence [Unknown]
  - Abdominal discomfort [Unknown]
  - Abdominal pain upper [Unknown]
